FAERS Safety Report 8454519-7 (Version None)
Quarter: 2012Q2

REPORT INFORMATION
  Report Type: 
  Country: None (occurrence: None)
  Receive Date: 20120621
  Receipt Date: 20120613
  Transmission Date: 20120825
  Serious: No
  Sender: FDA-Public Use
  Company Number: US-BIOGENIDEC-2012BI021136

PATIENT
  Age: 56 Year
  Sex: Female

DRUGS (1)
  1. TYSABRI [Suspect]
     Indication: MULTIPLE SCLEROSIS
     Route: 042
     Dates: start: 20120605

REACTIONS (11)
  - TREMOR [None]
  - GAIT DISTURBANCE [None]
  - ASTHENIA [None]
  - HYPOAESTHESIA [None]
  - ABDOMINAL PAIN UPPER [None]
  - DYSSTASIA [None]
  - ARTHRALGIA [None]
  - VISION BLURRED [None]
  - EMOTIONAL DISORDER [None]
  - HEADACHE [None]
  - BONE PAIN [None]
